FAERS Safety Report 5471895-8 (Version None)
Quarter: 2007Q3

REPORT INFORMATION
  Report Type: 
  Country: None (occurrence: None)
  Receive Date: 20070928
  Receipt Date: 20070731
  Transmission Date: 20080115
  Serious: No
  Sender: FDA-Public Use
  Company Number: US-BRISTOL-MYERS SQUIBB COMPANY-13863485

PATIENT
  Age: 34 Year
  Sex: Male

DRUGS (7)
  1. DEFINITY [Suspect]
     Indication: STRESS ECHOCARDIOGRAM
     Route: 042
     Dates: start: 20070724, end: 20070724
  2. AMARYL [Concomitant]
  3. METFORMIN [Concomitant]
  4. BENAZEPRIL HCL [Concomitant]
  5. ACTOS [Concomitant]
  6. HYDROCHLOROTHIAZIDE [Concomitant]
  7. LANTUS [Concomitant]

REACTIONS (3)
  - SINUS CONGESTION [None]
  - SNEEZING [None]
  - URTICARIA [None]
